FAERS Safety Report 9748501 (Version 1)
Quarter: 2013Q4

REPORT INFORMATION
  Report Type: Spontaneous
  Country: US (occurrence: None)
  Receive Date: 20131211
  Receipt Date: 20131211
  Transmission Date: 20140711
  Serious: Yes (Hospitalization)
  Sender: FDA-Public Use
  Company Number: None

PATIENT
  Age: 56 Year
  Sex: Male
  Weight: 86 kg

DRUGS (7)
  1. GAMMAGARD [Suspect]
     Indication: DEMYELINATING POLYNEUROPATHY
     Route: 042
     Dates: start: 20131118, end: 20131121
  2. LISINOPRIL [Concomitant]
  3. OMEPRAZOLE [Concomitant]
  4. METOPROLOL [Concomitant]
  5. PREDNISONE [Concomitant]
  6. FLOMAX [Concomitant]
  7. VITAMIN D [Concomitant]

REACTIONS (3)
  - Dyspnoea [None]
  - Chest pain [None]
  - Deep vein thrombosis [None]
